FAERS Safety Report 15974891 (Version 1)
Quarter: 2019Q1

REPORT INFORMATION
  Report Type: Spontaneous
  Country: US (occurrence: US)
  Receive Date: 20190218
  Receipt Date: 20190218
  Transmission Date: 20190418
  Serious: No
  Sender: FDA-Public Use
  Company Number: US-SHIRE-US201905242

PATIENT
  Sex: Female

DRUGS (1)
  1. XIIDRA [Suspect]
     Active Substance: LIFITEGRAST
     Indication: OFF LABEL USE
     Dosage: MORE THAN 1 GTT DROP IN EACH EYE
     Route: 047

REACTIONS (4)
  - Drug ineffective [Unknown]
  - Off label use [Unknown]
  - Accidental overdose [Unknown]
  - Dry eye [Unknown]
